FAERS Safety Report 9061599 (Version 1)
Quarter: 2013Q1

REPORT INFORMATION
  Report Type: Spontaneous
  Country: US (occurrence: None)
  Receive Date: 20130208
  Receipt Date: 20130208
  Transmission Date: 20140127
  Serious: No
  Sender: FDA-Public Use
  Company Number: None

PATIENT
  Age: 66 Year
  Sex: Male
  Weight: 70.31 kg

DRUGS (2)
  1. AVELOX [Suspect]
     Indication: PNEUMONIA BACTERIAL
     Dosage: 400 1/DAY FOR 7 DAYS PO
     Dates: start: 20130115, end: 20130120
  2. AVELOX [Suspect]
     Indication: BRONCHITIS
     Dosage: 400 1/DAY FOR 7 DAYS PO
     Dates: start: 20130115, end: 20130120

REACTIONS (7)
  - Disorientation [None]
  - Mental disorder [None]
  - Discomfort [None]
  - Tendon pain [None]
  - Paraesthesia [None]
  - Burning sensation [None]
  - Joint stiffness [None]
